FAERS Safety Report 9900668 (Version 3)
Quarter: 2014Q1

REPORT INFORMATION
  Report Type: Report from Study
  Country: US (occurrence: US)
  Receive Date: 20140217
  Receipt Date: 20140221
  Transmission Date: 20141002
  Serious: Yes (Hospitalization)
  Sender: FDA-Public Use
  Company Number: US-MERCK-1402USA006080

PATIENT
  Age: 55 Year
  Sex: Male
  Weight: 82 kg

DRUGS (14)
  1. VORINOSTAT [Suspect]
     Indication: NON-HODGKIN^S LYMPHOMA
     Dosage: 300 MG, PO ON DAY 1-5
     Route: 048
     Dates: start: 20140121, end: 20140125
  2. VORINOSTAT [Suspect]
     Indication: LYMPHOMA AIDS RELATED
  3. RITUXIMAB [Suspect]
     Indication: NON-HODGKIN^S LYMPHOMA
     Dosage: 375 MG/M2, IV ON DAY 1, BODY AREA 2.0012
     Route: 042
     Dates: start: 20140121, end: 20140121
  4. RITUXIMAB [Suspect]
     Indication: LYMPHOMA AIDS RELATED
  5. ETOPOSIDE [Suspect]
     Indication: NON-HODGKIN^S LYMPHOMA
     Dosage: 50 MG/M2/DAY CONTINUOUS IV INFUSION OVER 96 HOUR ON DAYS 1-4
     Route: 042
     Dates: start: 20140121, end: 20140124
  6. ETOPOSIDE [Suspect]
     Indication: LYMPHOMA AIDS RELATED
  7. DOXORUBICIN [Suspect]
     Indication: NON-HODGKIN^S LYMPHOMA
     Dosage: 10 MG/M2/DAY CONTINUOUS IV INFUSION OVER 96 HOUR ON DAYS 1-4
     Route: 042
     Dates: start: 20140121, end: 20140124
  8. DOXORUBICIN [Suspect]
     Indication: LYMPHOMA AIDS RELATED
  9. VINCRISTINE [Suspect]
     Indication: NON-HODGKIN^S LYMPHOMA
     Dosage: 0.4 MG/M2/DAY CONTINUOUS IV INFUSION OVER 96 HOUR ON DAYS 1-4
     Route: 042
     Dates: start: 20140121, end: 20140124
  10. VINCRISTINE [Suspect]
     Indication: LYMPHOMA AIDS RELATED
  11. PREDNISONE [Suspect]
     Indication: NON-HODGKIN^S LYMPHOMA
     Dosage: 60 MG/M2/ DAY, ON DAYS 1-5
     Route: 048
     Dates: start: 20140121, end: 20140125
  12. PREDNISONE [Suspect]
     Indication: LYMPHOMA AIDS RELATED
  13. CYCLOPHOSPHAMIDE [Suspect]
     Indication: NON-HODGKIN^S LYMPHOMA
     Dosage: 375 MG/M2- 750MG/M2 IV OVER 1 HOUR ON DAY 5
     Route: 042
     Dates: start: 20140125, end: 20140125
  14. CYCLOPHOSPHAMIDE [Suspect]
     Indication: LYMPHOMA AIDS RELATED

REACTIONS (1)
  - Febrile neutropenia [Recovered/Resolved]
